FAERS Safety Report 6700024-5 (Version None)
Quarter: 2010Q2

REPORT INFORMATION
  Report Type: 
  Country: None (occurrence: None)
  Receive Date: 20100428
  Receipt Date: 20100416
  Transmission Date: 20101027
  Serious: Yes (Other)
  Sender: FDA-Public Use
  Company Number: PHEH2010US02626

PATIENT
  Sex: Male
  Weight: 67.6 kg

DRUGS (4)
  1. EXJADE [Suspect]
     Indication: SICKLE CELL ANAEMIA
     Dosage: 1500 MG, QD
     Route: 048
     Dates: start: 20090316
  2. VICODIN [Concomitant]
     Indication: PAIN
     Dosage: 5/500
     Route: 048
     Dates: start: 20090317
  3. FOLIC ACID [Concomitant]
     Dosage: 1 MG
     Route: 048
     Dates: start: 20090317
  4. MOTRIN [Concomitant]
     Indication: PAIN
     Dosage: 800 MG, TID
     Route: 048
     Dates: start: 20100308

REACTIONS (1)
  - EYE DISORDER [None]
